FAERS Safety Report 8263593-2 (Version None)
Quarter: 2012Q2

REPORT INFORMATION
  Report Type: 
  Country: None (occurrence: None)
  Receive Date: 20120405
  Receipt Date: 20120328
  Transmission Date: 20120825
  Serious: Yes (Death, Other)
  Sender: FDA-Public Use
  Company Number: JP-AMGEN-JPNCT2012010820

PATIENT
  Age: 57 Year
  Sex: Female
  Weight: 52 kg

DRUGS (6)
  1. RINDERON VG [Concomitant]
     Indication: PROPHYLAXIS
     Route: 062
  2. OLOPATADINE HCL [Concomitant]
     Indication: PROPHYLAXIS
     Route: 048
     Dates: start: 20111212, end: 20120111
  3. PANITUMUMAB [Suspect]
     Indication: COLORECTAL CANCER
     Dosage: 310 MG, Q2WK
     Route: 041
     Dates: start: 20111212, end: 20111226
  4. CLARITHROMYCIN [Concomitant]
     Indication: PROPHYLAXIS
     Route: 048
     Dates: start: 20111212, end: 20111226
  5. HIRUDOID [Concomitant]
     Indication: PROPHYLAXIS
     Route: 062
  6. LOCOID [Concomitant]
     Indication: PROPHYLAXIS
     Route: 062

REACTIONS (6)
  - DRY SKIN [None]
  - PRURITUS [None]
  - CARDIO-RESPIRATORY ARREST [None]
  - STOMATITIS [None]
  - HYPERKALAEMIA [None]
  - DERMATITIS ACNEIFORM [None]
